FAERS Safety Report 8927240 (Version 3)
Quarter: 2012Q4

REPORT INFORMATION
  Report Type: Report from Study
  Country: US (occurrence: US)
  Receive Date: 20121127
  Receipt Date: 20121224
  Transmission Date: 20130627
  Serious: Yes (Hospitalization)
  Sender: FDA-Public Use
  Company Number: US-ROCHE-1156863

PATIENT
  Age: 66 Year
  Sex: Male
  Weight: 104.33 kg

DRUGS (11)
  1. VEMURAFENIB [Suspect]
     Indication: NEOPLASM
     Dosage: Total dose from most recent cycle 23,660
     Route: 048
     Dates: start: 20090505, end: 20121114
  2. PANTOPRAZOLE [Concomitant]
     Route: 065
     Dates: start: 20111114, end: 20121113
  3. FLONASE [Concomitant]
     Indication: HYPERSENSITIVITY
     Route: 065
     Dates: start: 20120919, end: 20121113
  4. ALBUTEROL [Concomitant]
     Indication: HYPERSENSITIVITY
     Route: 065
     Dates: start: 20120919, end: 20121113
  5. ASPIRIN [Concomitant]
     Route: 048
  6. ATORVASTATIN [Concomitant]
     Route: 048
  7. CARVEDILOL [Concomitant]
     Indication: CARDIOMYOPATHY
     Route: 048
  8. FUROSEMIDE [Concomitant]
     Route: 048
  9. LISINOPRIL [Concomitant]
     Indication: CARDIOMYOPATHY
     Route: 048
  10. PAROXETINE [Concomitant]
     Dosage: delayed release tablet
     Route: 048
  11. SPIRONOLACTONE [Concomitant]
     Indication: CARDIOMYOPATHY
     Route: 048

REACTIONS (3)
  - Renal failure acute [Recovered/Resolved]
  - Cardiac failure congestive [Recovered/Resolved with Sequelae]
  - Pneumonia [Recovered/Resolved]
